FAERS Safety Report 11749927 (Version 1)
Quarter: 2015Q4

REPORT INFORMATION
  Report Type: Spontaneous
  Country: US (occurrence: None)
  Receive Date: 20151117
  Receipt Date: 20151117
  Transmission Date: 20160304
  Serious: Yes (Death)
  Sender: FDA-Public Use
  Company Number: None

PATIENT
  Age: 68 Year
  Sex: Male

DRUGS (1)
  1. MYCOPHENOLATE [Suspect]
     Active Substance: MYCOPHENOLIC ACID
     Indication: PULMONARY FIBROSIS
     Dosage: 2 TABS TWICE DAILY
     Route: 048
     Dates: start: 20150806

REACTIONS (1)
  - Death [None]

NARRATIVE: CASE EVENT DATE: 201510
